FAERS Safety Report 17875052 (Version 3)
Quarter: 2020Q3

REPORT INFORMATION
  Report Type: Spontaneous
  Country: US (occurrence: US)
  Receive Date: 20200609
  Receipt Date: 20200723
  Transmission Date: 20201103
  Serious: No
  Sender: FDA-Public Use
  Company Number: US-PFIZER INC-2020223602

PATIENT
  Age: 62 Year
  Sex: Female

DRUGS (8)
  1. PREDNISONE. [Concomitant]
     Active Substance: PREDNISONE
     Dosage: UNK [20 MG]
  2. PREDNISONE. [Concomitant]
     Active Substance: PREDNISONE
     Dosage: UNK [5 MG]
     Dates: start: 202001
  3. LEVOTHYROXINE. [Concomitant]
     Active Substance: LEVOTHYROXINE
     Indication: HYPOTHYROIDISM
     Dosage: 112 UG, 1X/DAY
     Dates: end: 201901
  4. XELJANZ XR [Suspect]
     Active Substance: TOFACITINIB CITRATE
     Indication: RHEUMATOID ARTHRITIS
     Dosage: 11 MG, 1X/DAY
     Route: 048
     Dates: start: 201902
  5. PREDNISONE. [Concomitant]
     Active Substance: PREDNISONE
     Dosage: UNK [10 MG]
     Dates: start: 2019
  6. LEFLUNOMIDE. [Concomitant]
     Active Substance: LEFLUNOMIDE
     Dosage: 20 MG
  7. ALENDRONATE SODIUM. [Concomitant]
     Active Substance: ALENDRONATE SODIUM
     Indication: OSTEOPOROSIS
     Dosage: UNK, WEEKLY (ON MONDAYS)
  8. PREDNISONE. [Concomitant]
     Active Substance: PREDNISONE
     Dosage: 5 MG

REACTIONS (9)
  - Nausea [Unknown]
  - Vomiting [Unknown]
  - Headache [Recovered/Resolved]
  - Back pain [Unknown]
  - Obsessive-compulsive disorder [Unknown]
  - Herpes zoster [Unknown]
  - Breast pain [Unknown]
  - Rash [Unknown]
  - Post herpetic neuralgia [Unknown]

NARRATIVE: CASE EVENT DATE: 2020
